FAERS Safety Report 16961828 (Version 1)
Quarter: 2019Q4

REPORT INFORMATION
  Report Type: Spontaneous
  Country: NL (occurrence: NL)
  Receive Date: 20191025
  Receipt Date: 20191025
  Transmission Date: 20200122
  Serious: Yes (Other)
  Sender: FDA-Public Use
  Company Number: NL-PFIZER INC-2019455819

PATIENT
  Age: 66 Year
  Sex: Male
  Weight: 80 kg

DRUGS (11)
  1. OMEPRAZOLE. [Concomitant]
     Active Substance: OMEPRAZOLE
     Dosage: 40 MG, 2X/DAY (EVERY 12 HRS, 1 CAPSULE)
  2. OXYCODONE [Concomitant]
     Active Substance: OXYCODONE
     Dosage: 15 MG, 2X/DAY (EVERY 12 HRS, TWICE A DAY 1 TABLET)
  3. COLECALCIFEROL [Concomitant]
     Active Substance: CHOLECALCIFEROL
     Dosage: 50000 IU, MONTHLY (1X/MONTH 1 CAPSULE)
  4. SIMVASTATIN. [Concomitant]
     Active Substance: SIMVASTATIN
     Dosage: 1 DF, 1X/DAY (EVENING: 1 TABLET)
  5. PANZYTRAT 25^000 [Concomitant]
     Dosage: 1 DF, 3X/DAY (EVERY 8 HRS, THRICE A DAY 1 CAPSULE)
  6. METFORMIN [Concomitant]
     Active Substance: METFORMIN HYDROCHLORIDE
     Dosage: 1 DF, 2X/DAY (EVERY 12 HRS, MORNINGS 1 TABLET, EVENINGS 2 TABLETS)
  7. DIAZEPAM. [Concomitant]
     Active Substance: DIAZEPAM
     Dosage: 5 MG, 1X/DAY (1X/DAY 1 TABLET)
     Dates: start: 20190829, end: 20190913
  8. OXYCODONE [Concomitant]
     Active Substance: OXYCODONE
     Dosage: 5 MG, UNK (NO MORE THAN 6X/DAY 1 CAPSULE)
  9. ACETYLSALICYLIC ACID [Concomitant]
     Active Substance: ASPIRIN
     Dosage: 80 MG, 1X/DAY (1 TABLET)
  10. GLICLAZIDE [Concomitant]
     Active Substance: GLICLAZIDE
     Dosage: 3 DF, DAILY (MORNINGS: 2 TABLETS, EVENINGS: 1 TABLET, EVERY 12 HRS)
  11. PREGABALIN. [Suspect]
     Active Substance: PREGABALIN
     Indication: PAIN
     Dosage: 75 MG, 2X/DAY (EVERY 12 HRS, 2X/DAY 1 TABLET)
     Dates: start: 20190829, end: 20190830

REACTIONS (2)
  - Depressed level of consciousness [Recovered/Resolved]
  - Hypersomnia [Recovered/Resolved]

NARRATIVE: CASE EVENT DATE: 20190830
